FAERS Safety Report 11579747 (Version 2)
Quarter: 2015Q4

REPORT INFORMATION
  Report Type: Spontaneous
  Country: US (occurrence: US)
  Receive Date: 20150930
  Receipt Date: 20151008
  Transmission Date: 20160304
  Serious: Yes (Death, Hospitalization)
  Sender: FDA-Public Use
  Company Number: US-ACTELION-A-NJ2015-124624

PATIENT
  Age: 58 Year
  Sex: Female

DRUGS (1)
  1. VELETRI [Suspect]
     Active Substance: EPOPROSTENOL
     Indication: PULMONARY HYPERTENSION
     Dosage: 31.7 NG/KG, PER MIN
     Route: 042
     Dates: start: 20130618

REACTIONS (3)
  - Cardiac failure [Fatal]
  - Renal failure [Unknown]
  - Pulmonary arterial hypertension [Unknown]
